FAERS Safety Report 17790502 (Version 1)
Quarter: 2020Q2

REPORT INFORMATION
  Report Type: Spontaneous
  Country: US (occurrence: US)
  Receive Date: 20200514
  Receipt Date: 20200514
  Transmission Date: 20200714
  Serious: Yes (Hospitalization)
  Sender: FDA-Public Use
  Company Number: None

PATIENT
  Sex: Male

DRUGS (1)
  1. ETOPOSIDE. [Suspect]
     Active Substance: ETOPOSIDE
     Indication: PROSTATE CANCER
     Dosage: ?          OTHER FREQUENCY:2CAPS DAILY FOR 3D;?
     Route: 048
     Dates: start: 20191231

REACTIONS (4)
  - Device related infection [None]
  - Therapy interrupted [None]
  - White blood cell count decreased [None]
  - Red blood cell count decreased [None]
